FAERS Safety Report 11006110 (Version 2)
Quarter: 2015Q2

REPORT INFORMATION
  Report Type: Spontaneous
  Country: GB (occurrence: GB)
  Receive Date: 20150409
  Receipt Date: 20150419
  Transmission Date: 20150821
  Serious: Yes (Death)
  Sender: FDA-Public Use
  Company Number: PHFR2015GB002950

PATIENT
  Age: 34 Year
  Sex: Female

DRUGS (3)
  1. CITALOPRAM [Concomitant]
     Active Substance: CITALOPRAM HYDROBROMIDE
     Indication: DEPRESSION
     Dosage: 20 MG, QD
     Route: 048
  2. CLOZARIL [Suspect]
     Active Substance: CLOZAPINE
     Indication: SCHIZOPHRENIA
     Dosage: UNK
     Route: 048
     Dates: start: 20110722
  3. CLOZARIL [Suspect]
     Active Substance: CLOZAPINE
     Dosage: 150 MG, BID
     Route: 048

REACTIONS (1)
  - Myocardial infarction [Fatal]

NARRATIVE: CASE EVENT DATE: 20150329
